FAERS Safety Report 6340749-7 (Version None)
Quarter: 2009Q3

REPORT INFORMATION
  Report Type: 
  Country: None (occurrence: None)
  Receive Date: 20090904
  Receipt Date: 20090827
  Transmission Date: 20100115
  Serious: Yes (Hospitalization)
  Sender: FDA-Public Use
  Company Number: DE-BRISTOL-MYERS SQUIBB COMPANY-14711899

PATIENT
  Age: 69 Year
  Sex: Male
  Weight: 91 kg

DRUGS (4)
  1. CETUXIMAB [Suspect]
     Indication: HEAD AND NECK CANCER
     Dosage: STRENGTH: 5MG/ML;RECENT INFUSION : 09JUL09(2 INF) INTERRUPTED ON 17JUL2009 8 DAYS
     Route: 042
     Dates: start: 20090709, end: 20090717
  2. CISPLATIN [Suspect]
     Indication: HEAD AND NECK CANCER
     Dosage: RECENT INFUSION : 09JUL09(2 INF)
     Route: 042
     Dates: start: 20090709
  3. CILENGITIDE [Suspect]
     Indication: HEAD AND NECK CANCER
     Dosage: TAKEN ON 12JUL2009(8 DAYS)
     Route: 042
     Dates: start: 20090709, end: 20090717
  4. FLUOROURACIL [Suspect]
     Indication: HEAD AND NECK CANCER
     Dosage: DAY 1 TO DAY 4 OF CYC TAKEN ON 12JUL2009
     Route: 042
     Dates: start: 20090709

REACTIONS (1)
  - SYNCOPE [None]
